FAERS Safety Report 9883618 (Version 1)
Quarter: 2014Q1

REPORT INFORMATION
  Report Type: Spontaneous
  Country: US (occurrence: US)
  Receive Date: 20140210
  Receipt Date: 20140210
  Transmission Date: 20141002
  Serious: Yes (Other)
  Sender: FDA-Public Use
  Company Number: US-ROCHE-1344612

PATIENT
  Sex: 0

DRUGS (1)
  1. KLONOPIN [Suspect]
     Indication: PRODUCT USED FOR UNKNOWN INDICATION
     Route: 065

REACTIONS (7)
  - Suicidal ideation [Unknown]
  - Psychomotor hyperactivity [Unknown]
  - Delusion [Unknown]
  - Euphoric mood [Unknown]
  - Drug dependence [Unknown]
  - Judgement impaired [Unknown]
  - Personality change [Unknown]
